FAERS Safety Report 21788665 (Version 2)
Quarter: 2023Q1

REPORT INFORMATION
  Report Type: Spontaneous
  Country: CN (occurrence: CN)
  Receive Date: 20221228
  Receipt Date: 20230106
  Transmission Date: 20230417
  Serious: Yes (Hospitalization, Other)
  Sender: FDA-Public Use
  Company Number: CN-MLMSERVICE-20221214-3980678-1

PATIENT
  Age: 16 Year
  Sex: Male

DRUGS (2)
  1. METHOTREXATE SODIUM [Suspect]
     Active Substance: METHOTREXATE SODIUM
     Dosage: 10 G/M2, 4 CYCLES
     Dates: start: 2011, end: 2011
  2. EPIRUBICIN HYDROCHLORIDE [Suspect]
     Active Substance: EPIRUBICIN HYDROCHLORIDE
     Dosage: 80 MG/M2, 4 CYCLES
     Dates: start: 2011, end: 2011

REACTIONS (3)
  - Fracture nonunion [Recovered/Resolved]
  - Hyperkeratosis [Unknown]
  - Fibula fracture [Recovered/Resolved]

NARRATIVE: CASE EVENT DATE: 20120101
